FAERS Safety Report 13702189 (Version 1)
Quarter: 2017Q2

REPORT INFORMATION
  Report Type: Spontaneous
  Country: PT (occurrence: PT)
  Receive Date: 20170629
  Receipt Date: 20170629
  Transmission Date: 20170830
  Serious: Yes (Other)
  Sender: FDA-Public Use
  Company Number: PT-TEVA-780964ISR

PATIENT
  Sex: Female

DRUGS (1)
  1. COTRIMOXAZOL RATIOPHARM [Suspect]
     Active Substance: SULFAMETHOXAZOLE\TRIMETHOPRIM
     Indication: URINARY TRACT INFECTION
     Dosage: 2 DOSAGE FORMS DAILY;
     Route: 048
     Dates: start: 2014

REACTIONS (3)
  - Urticaria [Recovered/Resolved]
  - Angioedema [Recovered/Resolved]
  - Adverse reaction [Recovered/Resolved]

NARRATIVE: CASE EVENT DATE: 2014
